FAERS Safety Report 16920985 (Version 2)
Quarter: 2019Q4

REPORT INFORMATION
  Report Type: Report from Study
  Country: US (occurrence: US)
  Receive Date: 20191015
  Receipt Date: 20191015
  Transmission Date: 20200122
  Serious: Yes (Hospitalization)
  Sender: FDA-Public Use
  Company Number: PHHO2016US018343

PATIENT
  Age: 74 Year
  Sex: Female
  Weight: 63.04 kg

DRUGS (7)
  1. AMIODARONE [Suspect]
     Active Substance: AMIODARONE
     Dosage: UNK
     Route: 065
  2. METOPROLOL. [Concomitant]
     Active Substance: METOPROLOL
     Indication: HYPERTENSION
     Dosage: 50 MG, UNK
     Route: 065
     Dates: start: 20161129, end: 20161207
  3. AMIODARONE [Suspect]
     Active Substance: AMIODARONE
     Indication: ATRIAL FIBRILLATION
     Dosage: 300 MG, UNK
     Route: 065
     Dates: start: 20161120, end: 20161207
  4. DIOVAN [Suspect]
     Active Substance: VALSARTAN
     Indication: CARDIAC FAILURE
     Dosage: 40 MG, BID
     Route: 048
     Dates: start: 20161207, end: 20161207
  5. SPIRONOLACTONE. [Concomitant]
     Active Substance: SPIRONOLACTONE
     Indication: CARDIAC FAILURE CHRONIC
     Dosage: 25 MG, UNK
     Route: 065
     Dates: start: 20161129
  6. COUMADIN [Concomitant]
     Active Substance: WARFARIN SODIUM
     Indication: ATRIAL FIBRILLATION
     Dosage: 2.5 MG, UNK
     Route: 065
     Dates: start: 2012
  7. NO TREATMENT RECEIVED [Suspect]
     Active Substance: UNSPECIFIED INGREDIENT
     Indication: CARDIAC FAILURE
     Dosage: NO TREATMENT
     Route: 065

REACTIONS (1)
  - Bradycardia [Recovered/Resolved]

NARRATIVE: CASE EVENT DATE: 20161207
